FAERS Safety Report 7550650-9 (Version None)
Quarter: 2011Q2

REPORT INFORMATION
  Report Type: 
  Country: None (occurrence: None)
  Receive Date: 20110616
  Receipt Date: 20110607
  Transmission Date: 20111010
  Serious: Yes (Life-Threatening, Hospitalization)
  Sender: FDA-Public Use
  Company Number: GB-CELGENEUS-167-21880-11050771

PATIENT
  Age: 79 Year
  Sex: Male
  Weight: 60.8 kg

DRUGS (3)
  1. REVLIMID [Suspect]
     Dosage: 25 MILLIGRAM
     Route: 048
     Dates: start: 20110412, end: 20110426
  2. DEXAMETHASONE [Suspect]
     Dosage: 20 MILLIGRAM
     Route: 048
     Dates: start: 20110412, end: 20110426
  3. CYCLOPHOSPHAMIDE [Suspect]
     Dosage: 500 MILLIGRAM
     Route: 048
     Dates: start: 20110412, end: 20110426

REACTIONS (3)
  - INTERSTITIAL LUNG DISEASE [None]
  - BACTERIAL INFECTION [None]
  - PNEUMONIA [None]
